FAERS Safety Report 4316816-6 (Version None)
Quarter: 2004Q1

REPORT INFORMATION
  Report Type: 
  Country: None (occurrence: None)
  Receive Date: 20040308
  Receipt Date: 20040128
  Transmission Date: 20041129
  Serious: No
  Sender: FDA-Public Use
  Company Number: PHEH2004US01271

PATIENT
  Age: 47 Year
  Sex: Female

DRUGS (4)
  1. GLEEVEC [Suspect]
     Indication: CHRONIC MYELOID LEUKAEMIA
     Dosage: 100MG, TID
     Dates: start: 20030801, end: 20031201
  2. GLEEVEC [Suspect]
     Indication: CHRONIC MYELOID LEUKAEMIA
     Dosage: 100MG, TID, ORAL
     Route: 048
     Dates: start: 20031201
  3. XANAX [Concomitant]
  4. ZYPREXA [Concomitant]

REACTIONS (1)
  - ALOPECIA [None]
